FAERS Safety Report 7875331-3 (Version None)
Quarter: 2011Q4

REPORT INFORMATION
  Report Type: 
  Country: None (occurrence: None)
  Receive Date: 20111031
  Receipt Date: 20110805
  Transmission Date: 20120403
  Serious: Yes (Disabling, Other)
  Sender: FDA-Public Use
  Company Number: US-BAYER-2011-048813

PATIENT
  Sex: Female

DRUGS (6)
  1. BETASERON [Suspect]
     Dosage: 2 MIU, QOD
     Route: 058
     Dates: start: 20110101
  2. ACETAMINOPHEN [Concomitant]
  3. TOPAMAX [Concomitant]
  4. IBUPROFEN [Concomitant]
     Dosage: UNK
  5. BETASERON [Suspect]
     Indication: SECONDARY PROGRESSIVE MULTIPLE SCLEROSIS
     Dosage: 6 MIU, QOD
     Route: 058
     Dates: start: 20110503, end: 20110612
  6. BETASERON [Suspect]
     Dosage: 8 MIU, QOD
     Route: 058
     Dates: start: 20110613, end: 20110101

REACTIONS (15)
  - FLANK PAIN [None]
  - DEPRESSION [None]
  - CHILLS [None]
  - GAIT DISTURBANCE [None]
  - MIGRAINE [None]
  - PAIN [None]
  - FEELING COLD [None]
  - FALL [None]
  - PYREXIA [None]
  - TREMOR [None]
  - CONVULSION [None]
  - THINKING ABNORMAL [None]
  - SEIZURE LIKE PHENOMENA [None]
  - RESTLESS LEGS SYNDROME [None]
  - FATIGUE [None]
